FAERS Safety Report 23738505 (Version 1)
Quarter: 2024Q2

REPORT INFORMATION
  Report Type: Spontaneous
  Country: CA (occurrence: CA)
  Receive Date: 20240412
  Receipt Date: 20240412
  Transmission Date: 20240715
  Serious: Yes (Life-Threatening)
  Sender: FDA-Public Use
  Company Number: CA-TEVA-VS-3180865

PATIENT
  Age: 26 Year
  Sex: Male

DRUGS (6)
  1. DOXORUBICIN [Suspect]
     Active Substance: DOXORUBICIN
     Indication: Non-renal cell carcinoma of kidney
     Route: 065
  2. CARBOPLATIN [Suspect]
     Active Substance: CARBOPLATIN
     Indication: Non-renal cell carcinoma of kidney
     Route: 042
  3. GEMCITABINE [Suspect]
     Active Substance: GEMCITABINE
     Indication: Non-renal cell carcinoma of kidney
     Route: 065
  4. LENVATINIB [Suspect]
     Active Substance: LENVATINIB
     Indication: Non-renal cell carcinoma of kidney
     Route: 065
  5. PEMBROLIZUMAB [Suspect]
     Active Substance: PEMBROLIZUMAB
     Indication: Non-renal cell carcinoma of kidney
     Route: 065
  6. PACLITAXEL [Suspect]
     Active Substance: PACLITAXEL
     Indication: Non-renal cell carcinoma of kidney
     Dosage: LIQUID INTRAVENOUS
     Route: 042

REACTIONS (1)
  - Neoplasm progression [Unknown]
